FAERS Safety Report 11058533 (Version 1)
Quarter: 2015Q2

REPORT INFORMATION
  Report Type: Spontaneous
  Country: US (occurrence: None)
  Receive Date: 20150420
  Receipt Date: 20150420
  Transmission Date: 20150821
  Serious: No
  Sender: FDA-Public Use
  Company Number: AEGR001202

PATIENT
  Age: 59 Year
  Sex: Male
  Weight: 96.6 kg

DRUGS (7)
  1. LISINOPRIL (LISINOPRIL DIHYDRATE) [Concomitant]
  2. VITAMIN E (TOCOPHERYL ACETATE) [Concomitant]
  3. LIPITOR [Concomitant]
     Active Substance: ATORVASTATIN CALCIUM
  4. AMLODIPINE BESYLATE. [Concomitant]
     Active Substance: AMLODIPINE BESYLATE
  5. ASPIRIN (ACETYLSALCYLIC) [Concomitant]
  6. OMEGA 3 6 9 (OMEGA 9 FATTY ACIDS, OMEGA3 FATTY ACIDS, OMEGA-6 FATTY ACIDS) [Concomitant]
  7. JUXTAPID [Suspect]
     Active Substance: LOMITAPIDE MESYLATE
     Indication: TYPE IIA HYPERLIPIDAEMIA
     Route: 048
     Dates: start: 20150219, end: 20150308

REACTIONS (5)
  - Diarrhoea [None]
  - Asthenia [None]
  - Abdominal pain upper [None]
  - Weight decreased [None]
  - Therapy cessation [None]

NARRATIVE: CASE EVENT DATE: 20150219
